FAERS Safety Report 17562670 (Version 3)
Quarter: 2020Q2

REPORT INFORMATION
  Report Type: Spontaneous
  Country: US (occurrence: US)
  Receive Date: 20200319
  Receipt Date: 20200510
  Transmission Date: 20200713
  Serious: No
  Sender: FDA-Public Use
  Company Number: US-009507513-2003USA006948

PATIENT
  Sex: Female

DRUGS (2)
  1. PREGNYL [Suspect]
     Active Substance: CHORIOGONADOTROPIN ALFA
     Dosage: 5000 UNITS SUBCUTANEOUSLY FOR 1 DOSE
     Route: 030
     Dates: start: 20200316
  2. STERILE DILUENT (WATER) [Suspect]
     Active Substance: WATER
     Dosage: UNK
     Dates: start: 20200316

REACTIONS (4)
  - Drug ineffective [Not Recovered/Not Resolved]
  - Product preparation issue [Unknown]
  - Incorrect dosage administered [Unknown]
  - Product quality issue [Unknown]

NARRATIVE: CASE EVENT DATE: 2020
